FAERS Safety Report 12706093 (Version 1)
Quarter: 2016Q3

REPORT INFORMATION
  Report Type: Spontaneous
  Country: US (occurrence: US)
  Receive Date: 20160901
  Receipt Date: 20160901
  Transmission Date: 20161109
  Serious: Yes (Death)
  Sender: FDA-Public Use
  Company Number: US-ACCORD-043447

PATIENT
  Age: 75 Year
  Sex: Male

DRUGS (1)
  1. CAPECITABINE. [Suspect]
     Active Substance: CAPECITABINE
     Indication: COLON NEOPLASM
     Dosage: STRENGTH: 500 MG?4 TABLETS DAILY FOR 7 DAYS ON AND 7 DAYS OFF (TOTAL DAILY DOSE: 2000 MG)
     Route: 048

REACTIONS (1)
  - Death [Fatal]
